FAERS Safety Report 5498253-4 (Version None)
Quarter: 2007Q4

REPORT INFORMATION
  Report Type: 
  Country: None (occurrence: None)
  Receive Date: 20071025
  Receipt Date: 20070420
  Transmission Date: 20080405
  Serious: No
  Sender: FDA-Public Use
  Company Number: A0648150A

PATIENT
  Age: 54 Year
  Sex: Female

DRUGS (4)
  1. ADVAIR DISKUS 100/50 [Suspect]
     Indication: SARCOIDOSIS
     Route: 055
     Dates: start: 20010101
  2. DIOVAN [Concomitant]
  3. ATENOLOL [Concomitant]
  4. COUMADIN [Concomitant]

REACTIONS (3)
  - COUGH [None]
  - LUNG DISORDER [None]
  - PHARMACEUTICAL PRODUCT COMPLAINT [None]
